FAERS Safety Report 18748482 (Version 1)
Quarter: 2021Q1

REPORT INFORMATION
  Report Type: Spontaneous
  Country: US (occurrence: US)
  Receive Date: 20210116
  Receipt Date: 20210116
  Transmission Date: 20210419
  Serious: No
  Sender: FDA-Public Use
  Company Number: US-AUROBINDO-AUR-APL-2020-035061

PATIENT

DRUGS (1)
  1. DEXAMFETAMINE+AMFETAMINE 10MG [Suspect]
     Active Substance: AMPHETAMINE\DEXTROAMPHETAMINE
     Indication: PRODUCT USED FOR UNKNOWN INDICATION
     Dosage: UNK
     Route: 065

REACTIONS (8)
  - Myalgia [Unknown]
  - Migraine [Unknown]
  - Mydriasis [Unknown]
  - Crying [Unknown]
  - Heart rate increased [Unknown]
  - Abdominal pain [Unknown]
  - Diarrhoea [Unknown]
  - Disturbance in attention [Unknown]
